FAERS Safety Report 4863833-3 (Version None)
Quarter: 2005Q4

REPORT INFORMATION
  Report Type: 
  Country: None (occurrence: None)
  Receive Date: 20051222
  Receipt Date: 20051004
  Transmission Date: 20060501
  Serious: No
  Sender: FDA-Public Use
  Company Number: US-GLAXOSMITHKLINE-A0576975A

PATIENT
  Age: 69 Year
  Sex: Female

DRUGS (7)
  1. FLONASE [Suspect]
     Dosage: 2SPR AS REQUIRED
     Route: 045
  2. SYNTHROID [Concomitant]
  3. DIGOXIN [Concomitant]
  4. LITHOBID [Concomitant]
  5. LIPITOR [Concomitant]
  6. UNKNOWN MEDICATION [Concomitant]
  7. XALATAN [Concomitant]

REACTIONS (3)
  - AGITATION [None]
  - PHARMACEUTICAL PRODUCT COMPLAINT [None]
  - RESTLESSNESS [None]
